FAERS Safety Report 9034347 (Version 1)
Quarter: 2013Q1

REPORT INFORMATION
  Report Type: Spontaneous
  Country: US (occurrence: None)
  Receive Date: 20130111
  Receipt Date: 20130111
  Transmission Date: 20140127
  Serious: Yes (Other)
  Sender: FDA-Public Use
  Company Number: AUR-APL-2013-00083

PATIENT
  Age: 21 Year
  Sex: Male
  Weight: 129 kg

DRUGS (4)
  1. METOPROLOL [Suspect]
     Indication: BLOOD PRESSURE INCREASED
  2. GEODON (ZIPRASIDONE HYDROCHLORIDE) [Suspect]
     Indication: SCHIZOPHRENIA, PARANOID TYPE
     Dosage: 80 MG (40 MG, 2 IN 1 D), ORAL
     Route: 048
     Dates: start: 2012
  3. LEVOTHYROXINE (LEVOTHYROXINE) [Concomitant]
  4. METOPROLOL (METOPROLOL) [Concomitant]

REACTIONS (4)
  - Blood pressure increased [None]
  - Weight increased [None]
  - Diabetes mellitus [None]
  - Blood thyroid stimulating hormone decreased [None]
